FAERS Safety Report 17360086 (Version 1)
Quarter: 2020Q1

REPORT INFORMATION
  Report Type: Spontaneous
  Country: US (occurrence: US)
  Receive Date: 20200203
  Receipt Date: 20200203
  Transmission Date: 20200409
  Serious: No
  Sender: FDA-Public Use
  Company Number: US-CELGENEUS-USA-20200110251

PATIENT
  Sex: Male
  Weight: 89.44 kg

DRUGS (6)
  1. THALOMID [Suspect]
     Active Substance: THALIDOMIDE
     Dosage: 150 MILLIGRAM
     Route: 048
     Dates: start: 201904
  2. THALOMID [Suspect]
     Active Substance: THALIDOMIDE
     Indication: ERYTHEMA NODOSUM
     Dosage: 200 MILLIGRAM
     Route: 048
     Dates: start: 201309
  3. THALOMID [Suspect]
     Active Substance: THALIDOMIDE
     Dosage: 150-100 MILLIGRAMS
     Route: 048
     Dates: start: 201507
  4. THALOMID [Suspect]
     Active Substance: THALIDOMIDE
     Dosage: 50-100 MILLIGRAMS
     Route: 048
     Dates: start: 201805
  5. THALOMID [Suspect]
     Active Substance: THALIDOMIDE
     Indication: LEPROSY
     Dosage: 100-200 MILLIGRAMS
     Route: 048
     Dates: start: 201409
  6. THALOMID [Suspect]
     Active Substance: THALIDOMIDE
     Dosage: 100 MILLIGRAM
     Route: 048
     Dates: start: 202001

REACTIONS (4)
  - Abdominal distension [Not Recovered/Not Resolved]
  - Inflammation [Not Recovered/Not Resolved]
  - White blood cell count decreased [Not Recovered/Not Resolved]
  - Constipation [Not Recovered/Not Resolved]
